FAERS Safety Report 13982765 (Version 1)
Quarter: 2017Q3

REPORT INFORMATION
  Report Type: Spontaneous
  Country: US (occurrence: US)
  Receive Date: 20170918
  Receipt Date: 20170918
  Transmission Date: 20171128
  Serious: No
  Sender: FDA-Public Use
  Company Number: US-GLAXOSMITHKLINE-US2017GSK143567

PATIENT
  Sex: Male

DRUGS (1)
  1. SORIATANE [Suspect]
     Active Substance: ACITRETIN
     Indication: KERATOACANTHOMA
     Dosage: 25 MG, Z
     Route: 048

REACTIONS (2)
  - Product use in unapproved indication [Unknown]
  - Intercepted drug dispensing error [Unknown]
